FAERS Safety Report 23407794 (Version 4)
Quarter: 2024Q1

REPORT INFORMATION
  Report Type: Report from Study
  Country: MX (occurrence: MX)
  Receive Date: 20240117
  Receipt Date: 20240227
  Transmission Date: 20240409
  Serious: Yes (Hospitalization, Other)
  Sender: FDA-Public Use
  Company Number: MX-AstraZeneca-2023A290891

PATIENT
  Age: 1 Year
  Sex: Male
  Weight: 7 kg

DRUGS (9)
  1. SYNAGIS [Suspect]
     Active Substance: PALIVIZUMAB
     Indication: Respiratory syncytial virus infection
     Dosage: 1.07 ML, MONTHLY
     Route: 030
     Dates: end: 20231117
  2. SYNAGIS [Suspect]
     Active Substance: PALIVIZUMAB
     Dosage: MONTHLY
     Route: 030
     Dates: start: 20231215, end: 20231215
  3. SYNAGIS [Suspect]
     Active Substance: PALIVIZUMAB
     Dosage: MONTHLY
     Route: 030
     Dates: start: 20240115, end: 20240115
  4. UNSPECIFIED INGREDIENT [Concomitant]
     Active Substance: UNSPECIFIED INGREDIENT
     Indication: Product used for unknown indication
  5. SPIRONOLACTONE [Concomitant]
     Active Substance: SPIRONOLACTONE
     Indication: Product used for unknown indication
  6. CAPTOPRIL [Concomitant]
     Active Substance: CAPTOPRIL
     Indication: Product used for unknown indication
  7. FUROSEMIDE [Concomitant]
     Active Substance: FUROSEMIDE
     Indication: Product used for unknown indication
  8. ACETAMINOPHEN [Concomitant]
     Active Substance: ACETAMINOPHEN
     Indication: Product used for unknown indication
  9. CALCIUM PHOSPHATE [Concomitant]
     Active Substance: CALCIUM PHOSPHATE
     Indication: Hypothyroidism

REACTIONS (13)
  - Bronchiolitis [Recovered/Resolved]
  - Pneumonia [Recovered/Resolved]
  - Cough [Recovering/Resolving]
  - Cardiac failure [Recovering/Resolving]
  - Congenital cardiovascular anomaly [Recovering/Resolving]
  - Illness [Recovering/Resolving]
  - Productive cough [Recovered/Resolved]
  - Malaise [Recovering/Resolving]
  - Pyrexia [Recovered/Resolved]
  - Drug ineffective [Unknown]
  - Tachycardia [Recovered/Resolved]
  - Dyspnoea [Unknown]
  - Poor sucking reflex [Unknown]

NARRATIVE: CASE EVENT DATE: 20231101
